FAERS Safety Report 5580736-X (Version None)
Quarter: 2008Q1

REPORT INFORMATION
  Report Type: 
  Country: None (occurrence: None)
  Receive Date: 20080103
  Receipt Date: 20071222
  Transmission Date: 20080703
  Serious: Yes (Hospitalization, Other)
  Sender: FDA-Public Use
  Company Number: US-PFIZER INC-2007108549

PATIENT
  Sex: Male
  Weight: 63.636 kg

DRUGS (1)
  1. CHANTIX [Suspect]
     Indication: SMOKING CESSATION THERAPY
     Dates: start: 20070101, end: 20071201

REACTIONS (3)
  - CALCINOSIS [None]
  - MYOCARDIAL INFARCTION [None]
  - STENT PLACEMENT [None]
